FAERS Safety Report 13073923 (Version 1)
Quarter: 2016Q4

REPORT INFORMATION
  Report Type: Spontaneous
  Country: RU (occurrence: RU)
  Receive Date: 20161229
  Receipt Date: 20161229
  Transmission Date: 20170207
  Serious: Yes (Other)
  Sender: FDA-Public Use
  Company Number: RU-BAUSCH-BL-2016-032486

PATIENT
  Age: 10 Month
  Sex: Female

DRUGS (1)
  1. ELIDEL [Suspect]
     Active Substance: PIMECROLIMUS
     Indication: RASH ERYTHEMATOUS
     Route: 061
     Dates: start: 20161220, end: 20161220

REACTIONS (4)
  - Off label use [Unknown]
  - Rhinorrhoea [Unknown]
  - Application site erythema [Not Recovered/Not Resolved]
  - Cough [Unknown]

NARRATIVE: CASE EVENT DATE: 20161220
